FAERS Safety Report 23624177 (Version 2)
Quarter: 2024Q2

REPORT INFORMATION
  Report Type: Spontaneous
  Country: US (occurrence: US)
  Receive Date: 20240312
  Receipt Date: 20240605
  Transmission Date: 20240715
  Serious: No
  Sender: FDA-Public Use
  Company Number: US-Calliditas-2024CAL00360

PATIENT
  Age: 26 Year
  Sex: Female

DRUGS (2)
  1. TARPEYO [Suspect]
     Active Substance: BUDESONIDE
     Indication: IgA nephropathy
     Dosage: 16 MG (4 MG CAPSULES) ONCE DAILY
     Route: 048
     Dates: start: 20240219
  2. TARPEYO [Suspect]
     Active Substance: BUDESONIDE
     Indication: IgA nephropathy
     Dosage: 8 MG (4 MG CAPSULES) ONCE DAILY
     Route: 048
     Dates: start: 20240219

REACTIONS (6)
  - Epistaxis [Unknown]
  - Joint swelling [Unknown]
  - Myalgia [Unknown]
  - Peripheral swelling [Unknown]
  - Prescribed underdose [Unknown]
  - Proteinuria [Unknown]

NARRATIVE: CASE EVENT DATE: 20240201
